FAERS Safety Report 18990284 (Version 1)
Quarter: 2021Q1

REPORT INFORMATION
  Report Type: Other
  Country: FR (occurrence: FR)
  Receive Date: 20210310
  Receipt Date: 20210310
  Transmission Date: 20210420
  Serious: Yes (Death, Hospitalization)
  Sender: FDA-Public Use
  Company Number: FR-ROCHE-2784005

PATIENT
  Age: 58 Year
  Sex: Male

DRUGS (15)
  1. BEVACIZUMAB. [Suspect]
     Active Substance: BEVACIZUMAB
     Indication: COLORECTAL CANCER METASTATIC
     Route: 042
     Dates: start: 20170827, end: 20171025
  2. TIPIRACIL;TRIFLURIDINE [Concomitant]
     Active Substance: TIPIRACIL HYDROCHLORIDE\TRIFLURIDINE
     Dates: start: 20181005, end: 20181116
  3. OXALIPLATIN. [Concomitant]
     Active Substance: OXALIPLATIN
  4. IRINOTECAN [Concomitant]
     Active Substance: IRINOTECAN
  5. OXALIPLATIN. [Concomitant]
     Active Substance: OXALIPLATIN
     Route: 042
     Dates: start: 20170827, end: 20171025
  6. OXALIPLATIN. [Concomitant]
     Active Substance: OXALIPLATIN
     Route: 042
  7. OXALIPLATIN. [Concomitant]
     Active Substance: OXALIPLATIN
  8. LEUCOVORIN. [Concomitant]
     Active Substance: LEUCOVORIN
     Dosage: 2 HOURS
  9. RALTITREXED [Concomitant]
     Active Substance: RALTITREXED
     Dates: end: 20181206
  10. IRINOTECAN [Concomitant]
     Active Substance: IRINOTECAN
     Dates: end: 20180206
  11. 5?FLUOROURACIL [Concomitant]
     Active Substance: FLUOROURACIL
     Dosage: 46 HOURS 2400 MG/M2
     Route: 042
  12. OXALIPLATIN. [Concomitant]
     Active Substance: OXALIPLATIN
     Dates: end: 201703
  13. OXALIPLATIN. [Concomitant]
     Active Substance: OXALIPLATIN
     Dates: end: 20181206
  14. 5?FLUOROURACIL [Concomitant]
     Active Substance: FLUOROURACIL
     Route: 040
  15. RALTITREXED [Concomitant]
     Active Substance: RALTITREXED
     Route: 042
     Dates: start: 20170827, end: 20171025

REACTIONS (2)
  - Adrenal haematoma [Recovered/Resolved]
  - Adrenal insufficiency [Recovered/Resolved]

NARRATIVE: CASE EVENT DATE: 20171107
